FAERS Safety Report 14538606 (Version 3)
Quarter: 2018Q2

REPORT INFORMATION
  Report Type: Report from Study
  Country: US (occurrence: US)
  Receive Date: 20180216
  Receipt Date: 20180426
  Transmission Date: 20180711
  Serious: Yes (Hospitalization)
  Sender: FDA-Public Use
  Company Number: US-ASTRAZENECA-2018SE09815

PATIENT
  Sex: Female

DRUGS (13)
  1. ASPIRIN EC [Concomitant]
     Active Substance: ASPIRIN
  2. MELOXICAM. [Concomitant]
     Active Substance: MELOXICAM
  3. VALSARTAN. [Concomitant]
     Active Substance: VALSARTAN
  4. ADVAIR DISKUS [Concomitant]
     Active Substance: FLUTICASONE PROPIONATE\SALMETEROL XINAFOATE
  5. SENNA [Concomitant]
     Active Substance: SENNA LEAF\SENNOSIDES\SENNOSIDES A AND B
     Indication: LAXATIVE SUPPORTIVE CARE
  6. TAGRISSO [Suspect]
     Active Substance: OSIMERTINIB
     Indication: NON-SMALL CELL LUNG CANCER
     Route: 048
     Dates: start: 20180103
  7. VALSARTAN. [Concomitant]
     Active Substance: VALSARTAN
  8. ONDANSETRON HYDROCHLORIDE. [Concomitant]
     Active Substance: ONDANSETRON HYDROCHLORIDE
  9. NAPROXEN. [Concomitant]
     Active Substance: NAPROXEN
  10. ENOXAPARIN SODIUM. [Concomitant]
     Active Substance: ENOXAPARIN SODIUM
  11. BENZONATATE. [Concomitant]
     Active Substance: BENZONATATE
  12. METOPROLOL TARTRATE. [Suspect]
     Active Substance: METOPROLOL TARTRATE
     Route: 048
  13. LIDOCAINE. [Concomitant]
     Active Substance: LIDOCAINE

REACTIONS (6)
  - Swelling [Unknown]
  - Drug ineffective [Unknown]
  - Dyspnoea [Unknown]
  - Bone pain [Unknown]
  - Malaise [Unknown]
  - Pain [Unknown]
